FAERS Safety Report 8296005-3 (Version None)
Quarter: 2012Q2

REPORT INFORMATION
  Report Type: 
  Country: None (occurrence: None)
  Receive Date: 20120418
  Receipt Date: 20120410
  Transmission Date: 20120825
  Serious: Yes (Other)
  Sender: FDA-Public Use
  Company Number: US-US-EMD SERONO, INC.-7125683

PATIENT
  Sex: Female
  Weight: 84 kg

DRUGS (10)
  1. NEXIUM [Concomitant]
     Indication: GASTROOESOPHAGEAL REFLUX DISEASE
  2. CYMBALTA [Concomitant]
     Indication: DEPRESSION
  3. MECLIZINE [Concomitant]
     Indication: VERTIGO
  4. LISINOPRIL [Concomitant]
     Indication: PRODUCT USED FOR UNKNOWN INDICATION
  5. SINGULAIR [Concomitant]
     Indication: CHRONIC OBSTRUCTIVE PULMONARY DISEASE
  6. REBIF [Suspect]
     Indication: MULTIPLE SCLEROSIS
     Route: 058
     Dates: start: 20100409, end: 20120301
  7. ADVAIR DISKUS 100/50 [Concomitant]
     Indication: CHRONIC OBSTRUCTIVE PULMONARY DISEASE
  8. AMPYRA [Concomitant]
     Indication: BALANCE DISORDER
  9. TRAZODONE HCL [Concomitant]
     Indication: SLEEP DISORDER
  10. LYRICA [Concomitant]
     Indication: MULTIPLE SCLEROSIS

REACTIONS (1)
  - RHEUMATOID ARTHRITIS [None]
